FAERS Safety Report 19875789 (Version 1)
Quarter: 2021Q3

REPORT INFORMATION
  Report Type: Spontaneous
  Country: US (occurrence: US)
  Receive Date: 20210923
  Receipt Date: 20210923
  Transmission Date: 20211014
  Serious: Yes (Death, Other)
  Sender: FDA-Public Use
  Company Number: US-PERRIGO-21US028128

PATIENT
  Age: 73 Year
  Sex: Male

DRUGS (2)
  1. RANITIDINE HYDROCHLORIDE (156) [Suspect]
     Active Substance: RANITIDINE HYDROCHLORIDE
     Indication: GASTRIC ULCER
  2. RANITIDINE HYDROCHLORIDE (156) [Suspect]
     Active Substance: RANITIDINE HYDROCHLORIDE
     Indication: DYSPEPSIA
     Dosage: DOSE FREQUENCY: OTHER ? 2/D
     Route: 048
     Dates: start: 201601, end: 201809

REACTIONS (4)
  - Bladder cancer [Fatal]
  - Gastric cancer [Fatal]
  - Oesophageal carcinoma [Fatal]
  - Pancreatic carcinoma [Fatal]

NARRATIVE: CASE EVENT DATE: 20170101
